FAERS Safety Report 5081688-1 (Version None)
Quarter: 2006Q3

REPORT INFORMATION
  Report Type: 
  Country: None (occurrence: None)
  Receive Date: 20060816
  Receipt Date: 20060721
  Transmission Date: 20061208
  Serious: Yes (Other)
  Sender: FDA-Public Use
  Company Number: JP-BOEHRINGER INGELHEIM PHARMACEUTICALS, INC.-2006-BP-08885NB

PATIENT
  Age: 50 Year
  Sex: Female
  Weight: 56 kg

DRUGS (8)
  1. MOBIC [Suspect]
     Indication: BACK PAIN
     Route: 048
     Dates: start: 20060610, end: 20060701
  2. SOLON [Suspect]
     Indication: BACK PAIN
     Route: 048
     Dates: start: 20060610, end: 20060701
  3. RINLAXER [Concomitant]
     Indication: BACK PAIN
     Route: 048
     Dates: start: 20060610
  4. PREDNISOLONE [Concomitant]
     Route: 048
  5. JUVELA N (TOCOPHEROL NICOTINATE) [Concomitant]
     Route: 048
  6. SALIGREN (CEVIMELINE HYDROCHLORIDE HYDRATE) [Concomitant]
     Route: 048
  7. RANIMERCK (RANITIDINE HYDROCHLORIDE) [Concomitant]
     Route: 048
  8. MEVARICH (PRAVASTATIN SODIUM) [Concomitant]
     Route: 048

REACTIONS (4)
  - DEPRESSED LEVEL OF CONSCIOUSNESS [None]
  - LYMPHOCYTE STIMULATION TEST POSITIVE [None]
  - PYELONEPHRITIS [None]
  - PYREXIA [None]
